FAERS Safety Report 22354543 (Version 3)
Quarter: 2023Q2

REPORT INFORMATION
  Report Type: Spontaneous
  Country: US (occurrence: US)
  Receive Date: 20230523
  Receipt Date: 20230613
  Transmission Date: 20230721
  Serious: Yes (Death, Hospitalization)
  Sender: FDA-Public Use
  Company Number: US-KARYOPHARM-2023KPT001277

PATIENT

DRUGS (19)
  1. XPOVIO [Suspect]
     Active Substance: SELINEXOR
     Indication: Plasma cell myeloma
     Dosage: 60 MG, WEEKLY
     Route: 048
     Dates: start: 20230413, end: 202305
  2. XPOVIO [Suspect]
     Active Substance: SELINEXOR
     Dosage: 60 MG, WEEKLY
     Route: 048
     Dates: end: 20230607
  3. ACYCLOVIR ABBOTT VIAL [Concomitant]
  4. AMLODIPINE [Concomitant]
     Active Substance: AMLODIPINE BESYLATE
  5. CITALOPRAM [Concomitant]
     Active Substance: CITALOPRAM HYDROBROMIDE
  6. DEXAMETHASONE [Concomitant]
     Active Substance: DEXAMETHASONE
  7. FUROSEMIDE [Concomitant]
     Active Substance: FUROSEMIDE
  8. GABAPENTIN [Concomitant]
     Active Substance: GABAPENTIN
  9. KLOR-CON [Concomitant]
     Active Substance: POTASSIUM CHLORIDE
  10. MORPHINE [Concomitant]
     Active Substance: MORPHINE
  11. NALOXONE [Concomitant]
     Active Substance: NALOXONE
  12. OXYCODONE [Concomitant]
     Active Substance: OXYCODONE
  13. POMALYST [Concomitant]
     Active Substance: POMALIDOMIDE
  14. PROCHLORPERAZINE [Concomitant]
     Active Substance: PROCHLORPERAZINE
  15. WARFARIN [Concomitant]
     Active Substance: WARFARIN
  16. ZOFRAN [Concomitant]
     Active Substance: ONDANSETRON HYDROCHLORIDE
  17. K PHOS NEUTRAL [Concomitant]
     Active Substance: POTASSIUM PHOSPHATE, MONOBASIC\SODIUM PHOSPHATE, DIBASIC, ANHYDROUS\SODIUM PHOSPHATE, MONOBASIC, MON
  18. OMEPRAZOLE [Concomitant]
     Active Substance: OMEPRAZOLE
  19. NYSTATIN [Concomitant]
     Active Substance: NYSTATIN

REACTIONS (2)
  - Plasma cell myeloma [Fatal]
  - Pneumonia [Recovering/Resolving]

NARRATIVE: CASE EVENT DATE: 20230101
